FAERS Safety Report 9613383 (Version 1)
Quarter: 2013Q4

REPORT INFORMATION
  Report Type: Spontaneous
  Country: FR (occurrence: FR)
  Receive Date: 20131010
  Receipt Date: 20131010
  Transmission Date: 20140711
  Serious: Yes (Hospitalization)
  Sender: FDA-Public Use
  Company Number: FR-PFIZER INC-2013285770

PATIENT
  Age: 80 Year
  Sex: Male
  Weight: 50 kg

DRUGS (8)
  1. ZITHROMAX [Suspect]
     Indication: LOBAR PNEUMONIA
     Dosage: 250 MG, 2X/WEEK
     Route: 048
     Dates: start: 201303, end: 201307
  2. ORELOX [Suspect]
     Indication: LOBAR PNEUMONIA
     Dosage: 200 MG, 2X/DAY (FOR 10 DAYS MONTHLY)
     Route: 048
     Dates: start: 201302, end: 201302
  3. ORELOX [Suspect]
     Dosage: 200 MG, 2X/DAY(FOR 10 DAYS MONTHLY)
     Route: 048
     Dates: start: 201303, end: 201303
  4. ORELOX [Suspect]
     Dosage: 200 MG, 2X/DAY(FOR 10 DAYS MONTHLY)
     Route: 048
     Dates: start: 201304, end: 201304
  5. ORELOX [Suspect]
     Dosage: 200 MG, 2X/DAY (FOR 10 DAYS MONTHLY)
     Route: 048
     Dates: start: 20130628, end: 20130707
  6. IMUREL [Concomitant]
     Dosage: 50 MG, 2X/DAY
     Route: 048
     Dates: start: 201305
  7. APROVEL [Concomitant]
     Dosage: 150 MG, 1X/DAY
     Route: 048
  8. ANAFRANIL [Concomitant]
     Dosage: 10 MG, 1X/DAY
     Route: 048

REACTIONS (4)
  - Diarrhoea [Recovered/Resolved]
  - Hypokalaemia [Recovered/Resolved]
  - Asthenia [Recovered/Resolved]
  - Orthostatic hypotension [Recovered/Resolved]
